FAERS Safety Report 24782193 (Version 1)
Quarter: 2024Q4

REPORT INFORMATION
  Report Type: Other
  Country: CN (occurrence: CN)
  Receive Date: 20241227
  Receipt Date: 20241227
  Transmission Date: 20250114
  Serious: Yes (Death, Hospitalization)
  Sender: BIONPHARMA INC.
  Company Number: CN-Bion-014601

PATIENT
  Age: 33 Year
  Sex: Male

DRUGS (3)
  1. POTASSIUM CITRATE [Suspect]
     Active Substance: POTASSIUM CITRATE
     Indication: Mineral supplementation
  2. BETAMETHASONE [Concomitant]
     Active Substance: BETAMETHASONE
     Indication: Blindness
     Dosage: 8 MG/DAY
  3. TORSEMIDE [Concomitant]
     Active Substance: TORSEMIDE
     Indication: Supplementation therapy

REACTIONS (1)
  - Drug ineffective [Fatal]
